FAERS Safety Report 22525490 (Version 1)
Quarter: 2023Q2

REPORT INFORMATION
  Report Type: 
  Country: US (occurrence: US)
  Receive Date: 20230606
  Receipt Date: 20230606
  Transmission Date: 20230722
  Serious: No
  Sender: FDA-Public Use
  Company Number: US-C B Fleet Co Inc-202301-US-000199

PATIENT
  Age: 60 Year
  Sex: Male

DRUGS (2)
  1. NIX [Suspect]
     Active Substance: PERMETHRIN
     Indication: Lice infestation
     Dosage: USED TWICE
     Route: 061
  2. NIX [Suspect]
     Active Substance: PERMETHRIN
     Indication: Bed bug infestation

REACTIONS (3)
  - Skin burning sensation [Recovered/Resolved]
  - Ear swelling [Not Recovered/Not Resolved]
  - Product use in unapproved indication [None]
